FAERS Safety Report 7709948-3 (Version None)
Quarter: 2011Q3

REPORT INFORMATION
  Report Type: 
  Country: None (occurrence: None)
  Receive Date: 20110819
  Receipt Date: 20110808
  Transmission Date: 20111222
  Serious: Yes (Death)
  Sender: FDA-Public Use
  Company Number: 2011P1008241

PATIENT

DRUGS (1)
  1. CILOSTAZOL [Suspect]
     Indication: ISCHAEMIC STROKE
     Dosage: 200 MG;QD

REACTIONS (2)
  - CARDIAC DEATH [None]
  - CARDIOVASCULAR DISORDER [None]
